FAERS Safety Report 8242051-5 (Version None)
Quarter: 2012Q1

REPORT INFORMATION
  Report Type: 
  Country: None (occurrence: None)
  Receive Date: 20120329
  Receipt Date: 20120323
  Transmission Date: 20120608
  Serious: No
  Sender: FDA-Public Use
  Company Number: US-BIOGENIDEC-2012BI010361

PATIENT
  Age: 58 Year
  Sex: Female

DRUGS (2)
  1. TYSABRI [Suspect]
     Route: 042
     Dates: start: 20111010
  2. TYSABRI [Suspect]
     Indication: MULTIPLE SCLEROSIS
     Route: 042
     Dates: start: 20061030, end: 20101221

REACTIONS (6)
  - STAPHYLOCOCCAL SKIN INFECTION [None]
  - BALANCE DISORDER [None]
  - FALL [None]
  - HERPES VIRUS INFECTION [None]
  - MUSCLE SPASTICITY [None]
  - FATIGUE [None]
